FAERS Safety Report 6824739-3 (Version None)
Quarter: 2010Q3

REPORT INFORMATION
  Report Type: 
  Country: None (occurrence: None)
  Receive Date: 20100708
  Receipt Date: 20061116
  Transmission Date: 20110219
  Serious: No
  Sender: FDA-Public Use
  Company Number: US-PFIZER INC-2006147186

PATIENT
  Sex: Female
  Weight: 59 kg

DRUGS (5)
  1. CHANTIX [Suspect]
     Indication: SMOKING CESSATION THERAPY
     Dates: start: 20061101, end: 20061101
  2. SYNTHROID [Concomitant]
  3. PROTONIX [Concomitant]
  4. WELLBUTRIN [Concomitant]
     Dates: end: 20060101
  5. CELEXA [Concomitant]
     Dates: start: 20061106

REACTIONS (1)
  - DEPRESSION [None]
